FAERS Safety Report 9262995 (Version 1)
Quarter: 2013Q2

REPORT INFORMATION
  Report Type: Report from Study
  Country: DE (occurrence: DE)
  Receive Date: 20130430
  Receipt Date: 20130430
  Transmission Date: 20140414
  Serious: Yes (Hospitalization)
  Sender: FDA-Public Use
  Company Number: DE-CELGENEUS-062-C4047-12121737

PATIENT
  Age: 66 Year
  Sex: Male

DRUGS (5)
  1. CC-4047 [Suspect]
     Indication: MYELOFIBROSIS
     Dosage: 2 MILLIGRAM
     Route: 048
     Dates: start: 20100506, end: 20110504
  2. CC-4047 [Suspect]
     Dosage: .5 MILLIGRAM
     Route: 048
     Dates: start: 20110505, end: 20121113
  3. PREDNISONE [Suspect]
     Indication: MYELOFIBROSIS
     Dosage: 15 MILLIGRAM
     Route: 065
     Dates: start: 20120111, end: 20121113
  4. PREDNISONE [Suspect]
     Dosage: 30 MILLIGRAM
     Route: 065
     Dates: start: 20100730, end: 20100825
  5. PREDNISONE [Suspect]
     Dosage: 12.5 MILLIGRAM
     Route: 065
     Dates: start: 20121114

REACTIONS (1)
  - Haematocrit increased [Recovered/Resolved]
